FAERS Safety Report 5073125-8 (Version None)
Quarter: 2006Q3

REPORT INFORMATION
  Report Type: 
  Country: None (occurrence: None)
  Receive Date: 20060711
  Receipt Date: 20060508
  Transmission Date: 20061208
  Serious: No
  Sender: FDA-Public Use
  Company Number: 2006S1000093

PATIENT
  Age: 79 Year
  Sex: Female

DRUGS (17)
  1. CUBICIN [Suspect]
     Indication: INTERVERTEBRAL DISCITIS
     Dosage: 360 MG;Q24H;IV
     Route: 042
     Dates: start: 20060501, end: 20060509
  2. CUBICIN [Suspect]
     Indication: STAPHYLOCOCCAL OSTEOMYELITIS
     Dosage: 360 MG;Q24H;IV
     Route: 042
     Dates: start: 20060501, end: 20060509
  3. WARFARIN SODIUM [Concomitant]
  4. TYLENOL [Concomitant]
  5. DILTIAZEM HCL [Concomitant]
  6. OXYCODONE HCL [Concomitant]
  7. POTASSIUM CHLORIDE [Concomitant]
  8. MAGNESIUM HYROXIDE [Concomitant]
  9. FUROSEMIDE [Concomitant]
  10. FENTANYL [Concomitant]
  11. HYDROCODONE BITARTRATE [Concomitant]
  12. METOCLOPRAMIDE [Concomitant]
  13. ESCITALOPRAM [Concomitant]
  14. CALCIUM CARBONATE [Concomitant]
  15. MULTI-VITAMIN [Concomitant]
  16. POLYETHYLENE GLYCOL [Concomitant]
  17. RABEPRAZOLE SODIUM [Concomitant]

REACTIONS (4)
  - ALANINE AMINOTRANSFERASE INCREASED [None]
  - ASPARTATE AMINOTRANSFERASE INCREASED [None]
  - BLOOD ALKALINE PHOSPHATASE INCREASED [None]
  - BLOOD CREATINE PHOSPHOKINASE INCREASED [None]
